FAERS Safety Report 6294901-X (Version None)
Quarter: 2009Q3

REPORT INFORMATION
  Report Type: 
  Country: None (occurrence: None)
  Receive Date: 20090731
  Receipt Date: 20090731
  Transmission Date: 20100115
  Serious: Yes (Hospitalization)
  Sender: FDA-Public Use
  Company Number: None

PATIENT
  Age: 67 Year
  Sex: Male
  Weight: 81.6475 kg

DRUGS (1)
  1. WELCHOL [Suspect]
     Indication: HIGH DENSITY LIPOPROTEIN DECREASED
     Dosage: THREE TABS BID PO
     Route: 048
     Dates: start: 20080501, end: 20090705

REACTIONS (5)
  - ABDOMINAL PAIN [None]
  - CONSTIPATION [None]
  - FAECALOMA [None]
  - FATIGUE [None]
  - MYALGIA [None]
